FAERS Safety Report 20798711 (Version 1)
Quarter: 2022Q2

REPORT INFORMATION
  Report Type: Spontaneous
  Country: IT (occurrence: IT)
  Receive Date: 20220507
  Receipt Date: 20220507
  Transmission Date: 20220721
  Serious: Yes (Other)
  Sender: FDA-Public Use
  Company Number: IT-MSNLABS-2022MSNLIT00457

PATIENT
  Age: 65 Year
  Sex: Male

DRUGS (1)
  1. PACLITAXEL [Suspect]
     Active Substance: PACLITAXEL
     Indication: Liver disorder
     Dosage: 80MG/MQ,39 CYCLES OF CHEMOTHERAPY
     Route: 065
     Dates: start: 201912

REACTIONS (4)
  - Therapy partial responder [Unknown]
  - Disease progression [Unknown]
  - Anaemia [Unknown]
  - Neutropenia [Unknown]
